FAERS Safety Report 19250838 (Version 3)
Quarter: 2021Q2

REPORT INFORMATION
  Report Type: Spontaneous
  Country: JP (occurrence: JP)
  Receive Date: 20210513
  Receipt Date: 20210618
  Transmission Date: 20210717
  Serious: Yes (Hospitalization)
  Sender: FDA-Public Use
  Company Number: JP-009507513-2105JPN000455J

PATIENT
  Age: 50 Year
  Sex: Male
  Weight: 64 kg

DRUGS (8)
  1. BELSOMRA [Suspect]
     Active Substance: SUVOREXANT
     Indication: INSOMNIA
     Dosage: 15 MILLIGRAM, QD
     Route: 048
     Dates: start: 20200929, end: 20210330
  2. TRICHLORMETHIAZIDE [Concomitant]
     Active Substance: TRICHLORMETHIAZIDE
     Dosage: 2 MILLIGRAM, QD(MORNING)
     Route: 048
  3. FEXOFENADINE HYDROCHLORIDE. [Concomitant]
     Active Substance: FEXOFENADINE HYDROCHLORIDE
     Dosage: 120 MILLIGRAM, BID(MORNING,EVENING)
     Route: 048
  4. SPIRONOLACTONE. [Concomitant]
     Active Substance: SPIRONOLACTONE
     Dosage: 25 MILLIGRAM, QD(MORNING)
     Route: 048
  5. NIFEDIPINE. [Concomitant]
     Active Substance: NIFEDIPINE
     Dosage: 10 MILLIGRAM, QD(MORNING)
     Route: 048
  6. POLARAMINE [Concomitant]
     Active Substance: DEXCHLORPHENIRAMINE MALEATE
     Dosage: 2 MILLIGRAM, QD(BEFORE BEDTIME)
     Route: 048
  7. PITAVASTATIN CA [Concomitant]
     Active Substance: PITAVASTATIN CALCIUM
     Dosage: 1 MILLIGRAM, QD(MORNING)
     Route: 048
  8. LOSARTAN POTASSIUM. [Concomitant]
     Active Substance: LOSARTAN POTASSIUM
     Dosage: 25 MILLIGRAM, QD(MORNING)
     Route: 048

REACTIONS (3)
  - Rash [Recovering/Resolving]
  - Pruritus [Recovering/Resolving]
  - Underdose [Unknown]

NARRATIVE: CASE EVENT DATE: 20200929
